FAERS Safety Report 10251823 (Version 2)
Quarter: 2014Q2

REPORT INFORMATION
  Report Type: Spontaneous
  Country: BE (occurrence: BE)
  Receive Date: 20140623
  Receipt Date: 20140623
  Transmission Date: 20141212
  Serious: Yes (Hospitalization, Other)
  Sender: FDA-Public Use
  Company Number: BE-009507513-1405BEL004186

PATIENT
  Age: 62 Year
  Sex: Female
  Weight: 60 kg

DRUGS (4)
  1. TEMODAL [Suspect]
     Indication: GLIOBLASTOMA MULTIFORME
     Dosage: UNK
     Route: 048
     Dates: start: 20140413
  2. TEMODAL [Suspect]
     Dosage: UNK
     Route: 048
     Dates: end: 20140324
  3. METHYLPREDNISOLONE [Concomitant]
     Dosage: 8MG,DAILY
     Route: 048
  4. METHYLPREDNISOLONE [Concomitant]
     Dosage: UNK

REACTIONS (4)
  - Febrile neutropenia [Recovered/Resolved]
  - Visual impairment [Recovered/Resolved]
  - Sepsis [Recovered/Resolved]
  - Fusobacterium infection [Recovered/Resolved]
